FAERS Safety Report 10611337 (Version 3)
Quarter: 2014Q4

REPORT INFORMATION
  Report Type: Report from Study
  Country: RU (occurrence: RU)
  Receive Date: 20141126
  Receipt Date: 20141222
  Transmission Date: 20150529
  Serious: Yes (Death, Life-Threatening, Hospitalization, Disabling, Other)
  Sender: FDA-Public Use
  Company Number: RU-GLAXOSMITHKLINE-RU2014024392

PATIENT
  Age: 56 Year
  Sex: Male
  Weight: 129 kg

DRUGS (24)
  1. BLINDED FLUTICASONE FUROATE [Suspect]
     Active Substance: FLUTICASONE FUROATE
     Indication: CHRONIC OBSTRUCTIVE PULMONARY DISEASE
     Dates: start: 20121022, end: 20141118
  2. BLINDED FLUTICASONE FUROATE + VILANTEROL TRIFENATATE [Suspect]
     Active Substance: FLUTICASONE FUROATE\VILANTEROL TRIFENATATE
     Indication: CHRONIC OBSTRUCTIVE PULMONARY DISEASE
     Dates: start: 20121022, end: 20141118
  3. PLACEBO [Suspect]
     Active Substance: UNSPECIFIED INGREDIENT
     Indication: CHRONIC OBSTRUCTIVE PULMONARY DISEASE
     Dates: start: 20121022, end: 20141118
  4. SALBUTAMOL [Concomitant]
     Active Substance: ALBUTEROL
     Indication: CHRONIC OBSTRUCTIVE PULMONARY DISEASE
     Dosage: 200 MCG, BID
     Route: 055
     Dates: start: 20121015
  5. WARFARIN [Concomitant]
     Active Substance: WARFARIN
     Indication: THROMBOSIS PROPHYLAXIS
     Dosage: 5 MG, HS
     Route: 048
     Dates: start: 20130215
  6. ASPARCAM (POTASSIUM ASPARTATE/MAGNESIUM) [Concomitant]
     Indication: MYOCARDIAL ISCHAEMIA
     Dosage: 2 TAB,175MG, 3XWK
     Route: 048
     Dates: start: 20130422
  7. INSULIN SOLUBLE HUMAN BIOSYNTHETIC [Concomitant]
     Indication: DIABETES MELLITUS
     Dosage: 30 U, TID
     Route: 058
     Dates: start: 20131025
  8. BLINDED FLUTICASONE FUROATE + VILANTEROL TRIFENATATE [Suspect]
     Active Substance: FLUTICASONE FUROATE\VILANTEROL TRIFENATATE
     Indication: CHRONIC OBSTRUCTIVE PULMONARY DISEASE
     Dates: start: 20121022, end: 20141118
  9. BLINDED NO THERAPY [Suspect]
     Active Substance: UNSPECIFIED INGREDIENT
     Indication: CHRONIC OBSTRUCTIVE PULMONARY DISEASE
     Dates: start: 20121022, end: 20141118
  10. ACIDUM ACETYLSALICYLICUM/MAGNESIUM HYDROXIDE [Concomitant]
     Indication: MYOCARDIAL ISCHAEMIA
     Dosage: 1 TAB, 75MG/15.2MG, HS
     Route: 048
     Dates: start: 20130215
  11. BLINDED NO THERAPY [Suspect]
     Active Substance: UNSPECIFIED INGREDIENT
     Indication: CHRONIC OBSTRUCTIVE PULMONARY DISEASE
     Dates: start: 20121022, end: 20141118
  12. BLINDED VILANTEROL TRIFENATATE [Suspect]
     Active Substance: VILANTEROL TRIFENATATE
     Indication: CHRONIC OBSTRUCTIVE PULMONARY DISEASE
     Dates: start: 20121022, end: 20141118
  13. INSULIN ASPART [Concomitant]
     Active Substance: INSULIN ASPART
     Dosage: 28 U, QAM
     Route: 058
     Dates: start: 20130422
  14. AMLODIPINE [Concomitant]
     Active Substance: AMLODIPINE BESYLATE
     Indication: HYPERTENSION
     Dosage: 10 MG, OD
     Route: 048
     Dates: start: 20130422
  15. BLINDED FLUTICASONE FUROATE [Suspect]
     Active Substance: FLUTICASONE FUROATE
     Indication: CHRONIC OBSTRUCTIVE PULMONARY DISEASE
     Dates: start: 20121022, end: 20141118
  16. INSULIN ASPART [Concomitant]
     Active Substance: INSULIN ASPART
     Indication: DIABETES MELLITUS
     Dosage: 26 U, HS
     Route: 058
     Dates: start: 20130215
  17. ENZIX DUO [Concomitant]
     Active Substance: ENALAPRIL MALEATE\INDAPAMIDE
     Indication: HYPERTENSION
  18. LAMOTRIGINE. [Concomitant]
     Active Substance: LAMOTRIGINE
     Indication: EPILEPSY
     Dosage: 125 MG, BID
     Route: 048
     Dates: start: 20140529
  19. BLINDED VILANTEROL TRIFENATATE [Suspect]
     Active Substance: VILANTEROL TRIFENATATE
     Indication: CHRONIC OBSTRUCTIVE PULMONARY DISEASE
     Dates: start: 20121022, end: 20141118
  20. BISOPROLOL [Concomitant]
     Active Substance: BISOPROLOL
     Indication: HYPERTENSION
     Dosage: 5 MG, BID
     Route: 048
     Dates: start: 20130422
  21. SPIRONOLACTONE. [Concomitant]
     Active Substance: SPIRONOLACTONE
     Indication: HYPERTENSION
     Dosage: 50 MG, 3XWK
     Route: 048
     Dates: start: 20130422
  22. FUROSEMIDE. [Concomitant]
     Active Substance: FUROSEMIDE
     Indication: HYPERTENSION
     Dosage: 80 MG, 3XWK
     Route: 048
     Dates: start: 20130422
  23. ENZIX DUO [Concomitant]
     Active Substance: ENALAPRIL MALEATE\INDAPAMIDE
     Indication: HYPERTENSION
     Dosage: 1 TAB, OD (2.5/10 MG)
     Route: 048
     Dates: start: 20130422
  24. METFORMIN [Concomitant]
     Active Substance: METFORMIN HYDROCHLORIDE
     Indication: DIABETES MELLITUS
     Dosage: 1 G, BID
     Route: 048
     Dates: start: 20130422

REACTIONS (1)
  - Cerebrovascular accident [Fatal]

NARRATIVE: CASE EVENT DATE: 20141113
